FAERS Safety Report 4748219-4 (Version None)
Quarter: 2005Q3

REPORT INFORMATION
  Report Type: 
  Country: None (occurrence: None)
  Receive Date: 20050818
  Receipt Date: 20050705
  Transmission Date: 20060218
  Serious: Yes (Disabling)
  Sender: FDA-Public Use
  Company Number: GB-GILEAD-2005-0008476

PATIENT
  Sex: Male
  Weight: 91 kg

DRUGS (7)
  1. VIREAD [Suspect]
     Route: 048
     Dates: start: 20050607, end: 20050616
  2. 3TC [Concomitant]
     Route: 048
     Dates: start: 19970801
  3. 3TC [Concomitant]
     Route: 048
  4. NEVIRAPINE [Concomitant]
     Route: 048
     Dates: start: 19990701
  5. NEVIRAPINE [Concomitant]
     Route: 048
  6. D4T [Concomitant]
  7. CHOLESTYRAMINE [Concomitant]
     Indication: BLOOD CHOLESTEROL INCREASED
     Route: 048
     Dates: start: 20041001

REACTIONS (5)
  - ADVERSE DRUG REACTION [None]
  - JOINT STIFFNESS [None]
  - JOINT WARMTH [None]
  - MUSCULOSKELETAL STIFFNESS [None]
  - SKIN DISCOLOURATION [None]
